FAERS Safety Report 13796855 (Version 2)
Quarter: 2017Q3

REPORT INFORMATION
  Report Type: Spontaneous
  Country: US (occurrence: US)
  Receive Date: 20170726
  Receipt Date: 20170911
  Transmission Date: 20171127
  Serious: Yes (Other)
  Sender: FDA-Public Use
  Company Number: US-009507513-1707USA006830

PATIENT
  Age: 58 Year
  Sex: Male

DRUGS (2)
  1. PEGINTRON [Suspect]
     Active Substance: PEGINTERFERON ALFA-2B
     Indication: CHRONIC HEPATITIS C
     Dosage: UNK
  2. REBETOL [Suspect]
     Active Substance: RIBAVIRIN
     Indication: CHRONIC HEPATITIS C
     Dosage: UNK

REACTIONS (5)
  - Oropharyngeal squamous cell carcinoma [Unknown]
  - Treatment failure [Unknown]
  - Immune system disorder [Unknown]
  - Hepatocellular carcinoma [Unknown]
  - Metastatic squamous cell carcinoma [Unknown]
